FAERS Safety Report 5527860-5 (Version None)
Quarter: 2007Q4

REPORT INFORMATION
  Report Type: 
  Country: None (occurrence: None)
  Receive Date: 20071126
  Receipt Date: 20071126
  Transmission Date: 20080405
  Serious: No
  Sender: FDA-Public Use
  Company Number: None

PATIENT
  Sex: Female
  Weight: 82.6 kg

DRUGS (2)
  1. CLOFARABINE [Suspect]
     Indication: BONE MARROW CONDITIONING REGIMEN
     Dosage: 76 MG DAILY IV DRIP
     Route: 041
     Dates: start: 20071114, end: 20071117
  2. CAMPATH [Suspect]
     Dosage: 20 MG DAILY IV DRIP
     Route: 041
     Dates: start: 20071114, end: 20071119

REACTIONS (8)
  - AGITATION [None]
  - ANTICONVULSANT DRUG LEVEL DECREASED [None]
  - CEREBRAL ISCHAEMIA [None]
  - ENCEPHALOMALACIA [None]
  - HALLUCINATIONS, MIXED [None]
  - INFUSION RELATED REACTION [None]
  - METABOLIC ENCEPHALOPATHY [None]
  - NERVOUS SYSTEM DISORDER [None]
